FAERS Safety Report 18729359 (Version 2)
Quarter: 2023Q2

REPORT INFORMATION
  Report Type: Report from Study
  Country: GB (occurrence: GB)
  Receive Date: 20210112
  Receipt Date: 20230616
  Transmission Date: 20230722
  Serious: Yes (Hospitalization, Other)
  Sender: FDA-Public Use
  Company Number: GB-TAKEDA-GB201506811

PATIENT
  Age: 7 Year
  Sex: Male

DRUGS (19)
  1. IDURSULFASE [Suspect]
     Active Substance: IDURSULFASE
     Indication: Mucopolysaccharidosis II
     Dosage: 0.49 MILLIGRAM/KILOGRAM, 1/WEEK
     Route: 041
     Dates: start: 20090421
  2. IDURSULFASE [Suspect]
     Active Substance: IDURSULFASE
     Dosage: 0.34 MILLIGRAM/KILOGRAM, 1/WEEK
     Route: 042
     Dates: start: 20100415
  3. IDURSULFASE [Suspect]
     Active Substance: IDURSULFASE
     Dosage: 0.68 MILLIGRAM/KILOGRAM, 1/WEEK
     Route: 042
     Dates: start: 20100510
  4. IDURSULFASE [Suspect]
     Active Substance: IDURSULFASE
     Dosage: 0.63 MILLIGRAM/KILOGRAM, 1/WEEK
     Route: 042
     Dates: start: 20100602
  5. IDURSULFASE [Suspect]
     Active Substance: IDURSULFASE
     Dosage: 0.51 MILLIGRAM/KILOGRAM, 1/WEEK
     Route: 042
     Dates: start: 20110510
  6. IDURSULFASE [Suspect]
     Active Substance: IDURSULFASE
     Dosage: 0.55 MILLIGRAM/KILOGRAM, 1/WEEK
     Route: 042
     Dates: start: 20110815
  7. IDURSULFASE [Suspect]
     Active Substance: IDURSULFASE
     Dosage: 0.60 MILLIGRAM/KILOGRAM, 1/WEEK
     Route: 042
     Dates: start: 20130708
  8. IDURSULFASE [Suspect]
     Active Substance: IDURSULFASE
     Dosage: 0.47 MILLIGRAM/KILOGRAM, 1/WEEK
     Route: 042
     Dates: start: 20120530
  9. IDURSULFASE [Suspect]
     Active Substance: IDURSULFASE
     Dosage: 0.36 MILLIGRAM/KILOGRAM, 1/WEEK
     Route: 042
     Dates: start: 20131212, end: 202112
  10. MELATONIN [Concomitant]
     Active Substance: MELATONIN
     Indication: Sleep disorder
     Dosage: UNK
     Route: 048
     Dates: start: 201009
  11. IBUPROFEN [Concomitant]
     Active Substance: IBUPROFEN
     Indication: Product used for unknown indication
     Dosage: UNK
     Route: 065
     Dates: start: 20131212
  12. ACETAMINOPHEN [Concomitant]
     Active Substance: ACETAMINOPHEN
     Indication: Premedication
     Dosage: UNK
     Route: 048
     Dates: start: 20090421
  13. HYDROXYZINE [Concomitant]
     Active Substance: HYDROXYZINE HYDROCHLORIDE
     Indication: Premedication
     Dosage: UNK
     Route: 048
     Dates: start: 20090421
  14. EMLA [Concomitant]
     Active Substance: LIDOCAINE\PRILOCAINE
     Indication: Product used for unknown indication
     Dosage: UNK
     Route: 065
     Dates: start: 20131212
  15. CHLORPHENIRAMINE MALEATE [Concomitant]
     Active Substance: CHLORPHENIRAMINE MALEATE
     Indication: Product used for unknown indication
     Dosage: UNK
     Route: 065
     Dates: start: 20131212
  16. RANITIDINE [Concomitant]
     Active Substance: RANITIDINE
     Indication: Product used for unknown indication
     Dosage: UNK
     Route: 065
     Dates: start: 20131212
  17. CIMETIDINE [Concomitant]
     Active Substance: CIMETIDINE
     Dosage: UNK
     Route: 048
     Dates: start: 2020
  18. OMEPRAZOLE [Concomitant]
     Active Substance: OMEPRAZOLE
     Dosage: UNK
     Route: 048
     Dates: start: 20201202
  19. MONTELUKAST [Concomitant]
     Active Substance: MONTELUKAST SODIUM
     Dosage: UNK
     Route: 048
     Dates: start: 20211215

REACTIONS (2)
  - Cholesteatoma [Recovered/Resolved]
  - Infusion site swelling [Recovered/Resolved]

NARRATIVE: CASE EVENT DATE: 20140101
